FAERS Safety Report 10215428 (Version 1)
Quarter: 2014Q2

REPORT INFORMATION
  Report Type: Spontaneous
  Country: AU (occurrence: AU)
  Receive Date: 20140604
  Receipt Date: 20140604
  Transmission Date: 20141212
  Serious: Yes (Death)
  Sender: FDA-Public Use
  Company Number: AU-009507513-1406AUS000802

PATIENT
  Age: 79 Year
  Sex: Female

DRUGS (6)
  1. SIMVASTATIN [Suspect]
     Route: 048
  2. ATACAND [Concomitant]
     Route: 048
  3. CARTIA (ASPIRIN) [Concomitant]
  4. TENORMIN [Concomitant]
  5. TRITACE [Concomitant]
  6. LEVOTHYROXINE SODIUM [Concomitant]

REACTIONS (7)
  - Psoriasis [Fatal]
  - Fall [Fatal]
  - Head injury [Fatal]
  - Contusion [Fatal]
  - Rash [Fatal]
  - Dizziness [Fatal]
  - Amnesia [Fatal]
